FAERS Safety Report 6763939-8 (Version None)
Quarter: 2010Q2

REPORT INFORMATION
  Report Type: 
  Country: None (occurrence: None)
  Receive Date: 20100610
  Receipt Date: 20100601
  Transmission Date: 20101027
  Serious: Yes (Hospitalization)
  Sender: FDA-Public Use
  Company Number: BE-AMGEN-UK345074

PATIENT
  Sex: Female

DRUGS (7)
  1. AMG 102 [Suspect]
     Indication: NEOPLASM MALIGNANT
     Route: 042
     Dates: start: 20090226
  2. PANITUMUMAB [Suspect]
     Indication: COLORECTAL CANCER
     Route: 042
     Dates: start: 20090226
  3. DOXYCYCLINE [Concomitant]
  4. CACIT VITAMINE D3 [Concomitant]
  5. FERRO-GRADUMET [Concomitant]
  6. LASIX [Concomitant]
     Route: 048
  7. ALDACTONE [Concomitant]
     Route: 048
     Dates: start: 20090429, end: 20090622

REACTIONS (1)
  - CAPILLARY LEAK SYNDROME [None]
